FAERS Safety Report 6321473-3 (Version None)
Quarter: 2009Q3

REPORT INFORMATION
  Report Type: 
  Country: None (occurrence: None)
  Receive Date: 20090824
  Receipt Date: 20070521
  Transmission Date: 20100115
  Serious: Yes (Other)
  Sender: FDA-Public Use
  Company Number: US-ASTRAZENECA-2006UW24559

PATIENT
  Age: 11872 Day
  Sex: Female
  Weight: 124.7 kg

DRUGS (12)
  1. SEROQUEL [Suspect]
     Indication: SCHIZOPHRENIA
     Dosage: 100-600 MG
     Route: 048
     Dates: start: 20020118
  2. ABILIFY [Concomitant]
  3. RISPERDAL [Concomitant]
  4. THORAZINE [Concomitant]
  5. TRILAFON [Concomitant]
  6. ZYPREXA [Concomitant]
  7. KLONOPIN [Concomitant]
     Dosage: 0.5-3 MG
     Dates: start: 20020103
  8. ZOCOR [Concomitant]
     Dates: start: 20020613
  9. COLACE [Concomitant]
     Dates: start: 20010716
  10. DEPAKOTE [Concomitant]
     Dosage: 750-2000 MG
     Dates: start: 20020114
  11. COGENTIN [Concomitant]
     Dates: start: 20020903
  12. LOVASTATIN [Concomitant]
     Dates: start: 20060830, end: 20061205

REACTIONS (5)
  - DIABETES MELLITUS [None]
  - DIABETES MELLITUS INADEQUATE CONTROL [None]
  - INSULIN RESISTANCE [None]
  - NEUROPATHY PERIPHERAL [None]
  - TYPE 2 DIABETES MELLITUS [None]
